FAERS Safety Report 9972841 (Version 1)
Quarter: 2014Q1

REPORT INFORMATION
  Report Type: Spontaneous
  Country: FR (occurrence: FR)
  Receive Date: 20140306
  Receipt Date: 20140306
  Transmission Date: 20141002
  Serious: Yes (Other)
  Sender: FDA-Public Use
  Company Number: FR-B.I. PHARMACEUTICALS,INC./RIDGEFIELD-2014-BI-08887FF

PATIENT
  Age: 78 Year
  Sex: Female

DRUGS (4)
  1. PRADAXA [Suspect]
     Indication: PRODUCT USED FOR UNKNOWN INDICATION
     Dosage: 220 MG
     Route: 048
     Dates: start: 20130514, end: 20130515
  2. FRAGMINE 5000IU ANTI XA/2ML [Suspect]
     Indication: PRODUCT USED FOR UNKNOWN INDICATION
     Dosage: 0.2 ML
     Route: 058
     Dates: start: 20130510, end: 20130513
  3. ASPEGIC INJECTABLE 500MG/5ML [Suspect]
     Indication: PRODUCT USED FOR UNKNOWN INDICATION
     Dosage: 250 MG
     Route: 042
     Dates: start: 20130510, end: 20130513
  4. AMOXICILLINE / CLAVULANIC ACID MYLAN 500MG/62.5MG ADULT [Concomitant]
     Route: 065
     Dates: start: 20130507, end: 20130520

REACTIONS (1)
  - Deep vein thrombosis [Not Recovered/Not Resolved]
